FAERS Safety Report 6200786-X (Version None)
Quarter: 2009Q2

REPORT INFORMATION
  Report Type: 
  Country: None (occurrence: None)
  Receive Date: 20090522
  Receipt Date: 20090518
  Transmission Date: 20091009
  Serious: Yes (Other)
  Sender: FDA-Public Use
  Company Number: US-JNJCH-2009013884

PATIENT
  Age: 44 Year
  Sex: Female
  Weight: 59.9 kg

DRUGS (1)
  1. COOL MINT LISTERINE [Suspect]
     Indication: BREATH ODOUR
     Dosage: TEXT:1ML TWICE DAILY
     Route: 048

REACTIONS (5)
  - ABDOMINAL PAIN UPPER [None]
  - APPLICATION SITE IRRITATION [None]
  - COELIAC DISEASE [None]
  - DYSPHONIA [None]
  - GASTROOESOPHAGEAL REFLUX DISEASE [None]
